FAERS Safety Report 8153216-5 (Version None)
Quarter: 2012Q1

REPORT INFORMATION
  Report Type: 
  Country: None (occurrence: None)
  Receive Date: 20120221
  Receipt Date: 20120213
  Transmission Date: 20120608
  Serious: Yes (Disabling, Other)
  Sender: FDA-Public Use
  Company Number: US-JNJFOC-20120112924

PATIENT
  Sex: Female
  Weight: 61.24 kg

DRUGS (9)
  1. SYNTHROID [Suspect]
     Indication: THYROID DISORDER
     Dosage: DURATION 10 YEARS
     Route: 048
  2. INVEGA SUSTENNA [Suspect]
     Indication: BIPOLAR DISORDER
     Dosage: AFTER 28-FEB-2012
     Route: 030
  3. ATENOLOL [Suspect]
     Indication: HYPERTENSION
     Route: 048
  4. INVEGA SUSTENNA [Suspect]
     Route: 030
     Dates: start: 20120124, end: 20120124
  5. ALBUTEROL [Concomitant]
     Indication: ASTHMA
     Route: 055
  6. INVEGA SUSTENNA [Suspect]
     Route: 030
     Dates: start: 20120131
  7. MAGNESIUM [Concomitant]
     Indication: OSTEOPOROSIS
     Route: 048
  8. MULTIPLE VITAMIN [Concomitant]
     Indication: MEDICAL DIET
     Route: 048
  9. VITAMIN B COMPLEX CAP [Concomitant]
     Indication: MEDICAL DIET
     Route: 048

REACTIONS (12)
  - INJECTION SITE PAIN [None]
  - VISION BLURRED [None]
  - INSOMNIA [None]
  - DYSPEPSIA [None]
  - RESTLESS LEGS SYNDROME [None]
  - DIZZINESS [None]
  - CARDIAC FLUTTER [None]
  - LACERATION [None]
  - AGITATION [None]
  - DEPRESSION [None]
  - DIARRHOEA [None]
  - MEMORY IMPAIRMENT [None]
